FAERS Safety Report 11121488 (Version 1)
Quarter: 2015Q2

REPORT INFORMATION
  Report Type: Spontaneous
  Country: US (occurrence: US)
  Receive Date: 20150519
  Receipt Date: 20150519
  Transmission Date: 20150821
  Serious: Yes (Hospitalization)
  Sender: FDA-Public Use
  Company Number: US-PFIZER INC-2015167120

PATIENT
  Age: 63 Year
  Sex: Female
  Weight: 71.66 kg

DRUGS (1)
  1. SUTENT [Suspect]
     Active Substance: SUNITINIB MALATE
     Indication: RENAL CANCER
     Dosage: 37.5 MG, QD
     Route: 048

REACTIONS (2)
  - White blood cell count increased [Unknown]
  - Confusional state [Unknown]
